FAERS Safety Report 8102943-4 (Version None)
Quarter: 2012Q1

REPORT INFORMATION
  Report Type: 
  Country: None (occurrence: None)
  Receive Date: 20120127
  Receipt Date: 20120112
  Transmission Date: 20120608
  Serious: Yes (Hospitalization)
  Sender: FDA-Public Use
  Company Number: B0775384A

PATIENT
  Sex: Male

DRUGS (8)
  1. ENALAPRIL MALEATE [Concomitant]
  2. COTRIM D.S. [Suspect]
     Indication: GASTROENTERITIS SALMONELLA
     Dosage: ORAL
     Route: 048
     Dates: start: 20110610, end: 20110621
  3. METFORMIN HCL [Concomitant]
  4. DOXAZOSIN MESYLATE [Concomitant]
  5. ESOMEPRAZOLE [Concomitant]
  6. POTASSIUM CHLORIDE [Concomitant]
  7. LORAZEPAM [Concomitant]
  8. CEFTAZIDIME SODIUM [Suspect]
     Indication: PROTEUS INFECTION
     Dosage: INTRAVENOUS
     Route: 042
     Dates: start: 20110621, end: 20110629

REACTIONS (1)
  - CLOSTRIDIUM DIFFICILE COLITIS [None]
